FAERS Safety Report 8285043-2 (Version None)
Quarter: 2012Q2

REPORT INFORMATION
  Report Type: 
  Country: None (occurrence: None)
  Receive Date: 20120413
  Receipt Date: 20110826
  Transmission Date: 20120825
  Serious: No
  Sender: FDA-Public Use
  Company Number: US-ASTRAZENECA-2011SE34781

PATIENT
  Age: 73 Year
  Sex: Female

DRUGS (3)
  1. OXYCONTIN [Concomitant]
  2. NEXIUM [Suspect]
     Route: 048
  3. REMICADE [Concomitant]

REACTIONS (3)
  - RHEUMATOID ARTHRITIS [None]
  - GASTRIC DISORDER [None]
  - POOR PERIPHERAL CIRCULATION [None]
